FAERS Safety Report 26167604 (Version 1)
Quarter: 2025Q4

REPORT INFORMATION
  Report Type: Spontaneous
  Country: CN (occurrence: CN)
  Receive Date: 20251217
  Receipt Date: 20251217
  Transmission Date: 20260118
  Serious: Yes (Other)
  Sender: Kenvue
  Company Number: CN-KENVUE-20251204500

PATIENT
  Age: 22 Year
  Weight: 60 kg

DRUGS (1)
  1. LOPERAMIDE HYDROCHLORIDE [Suspect]
     Active Substance: LOPERAMIDE HYDROCHLORIDE
     Indication: Anal fistula
     Dosage: 2 DOSAGE FORM, ONCE A DAY
     Route: 061

REACTIONS (2)
  - Faecaloma [Recovering/Resolving]
  - Off label use [Unknown]
